FAERS Safety Report 6122612-X (Version None)
Quarter: 2009Q1

REPORT INFORMATION
  Report Type: 
  Country: None (occurrence: None)
  Receive Date: 20090318
  Receipt Date: 20090316
  Transmission Date: 20090719
  Serious: Yes (Hospitalization)
  Sender: FDA-Public Use
  Company Number: GB-WYE-G03327609

PATIENT
  Sex: Male

DRUGS (2)
  1. GEMTUZUMAB OZOGAMICIN [Suspect]
     Dosage: UNKNOWN
     Dates: start: 20090312
  2. ARA-C [Suspect]
     Dosage: UNKNOWN
     Dates: start: 20090312

REACTIONS (2)
  - MALAISE [None]
  - PYREXIA [None]
